FAERS Safety Report 9698477 (Version 2)
Quarter: 2013Q4

REPORT INFORMATION
  Report Type: Report from Study
  Country: DE (occurrence: DE)
  Receive Date: 20131120
  Receipt Date: 20131120
  Transmission Date: 20140711
  Serious: Yes (Hospitalization)
  Sender: FDA-Public Use
  Company Number: DE-ABBVIE-13P-062-1142900-00

PATIENT
  Age: 44 Year
  Sex: Female
  Weight: 66 kg

DRUGS (9)
  1. HUMIRA [Suspect]
     Indication: CROHN^S DISEASE
     Route: 058
     Dates: start: 20130212, end: 20130807
  2. HUMIRA [Suspect]
     Route: 058
     Dates: start: 20130903
  3. SUFENTANIL [Suspect]
     Dates: start: 201308, end: 201308
  4. ARCOXIA [Suspect]
     Indication: PRODUCT USED FOR UNKNOWN INDICATION
     Dates: start: 201308
  5. SALOFALK [Concomitant]
     Indication: CROHN^S DISEASE
     Dates: start: 201308
  6. BUDENOFALK [Concomitant]
     Indication: CROHN^S DISEASE
     Dates: start: 201308
  7. PANTOPRAZOL [Concomitant]
     Indication: PRODUCT USED FOR UNKNOWN INDICATION
  8. CALCIMAGON [Concomitant]
     Indication: PRODUCT USED FOR UNKNOWN INDICATION
  9. QUANTALAN [Concomitant]
     Indication: PRODUCT USED FOR UNKNOWN INDICATION

REACTIONS (8)
  - Intestinal stenosis [Recovering/Resolving]
  - Ileus [Unknown]
  - Enteritis [Unknown]
  - Weight decreased [Unknown]
  - Endometriosis [Unknown]
  - Tongue coated [Unknown]
  - Lymphoedema [Unknown]
  - Hypersensitivity [Unknown]
